FAERS Safety Report 9398276 (Version 1)
Quarter: 2013Q3

REPORT INFORMATION
  Report Type: Spontaneous
  Country: US (occurrence: US)
  Receive Date: 20130712
  Receipt Date: 20130712
  Transmission Date: 20140515
  Serious: No
  Sender: FDA-Public Use
  Company Number: US-GLAXOSMITHKLINE-A1000334A

PATIENT
  Age: 43 Year
  Sex: Female

DRUGS (18)
  1. FLOVENT [Suspect]
     Indication: ASTHMA
     Dosage: 2PUFF TWICE PER DAY
     Route: 055
     Dates: start: 200903
  2. SINGULAR [Concomitant]
  3. NEBULIZER [Concomitant]
  4. ATROVENT [Concomitant]
  5. UNKNOWN MEDICATION [Concomitant]
  6. ZYRTEC [Concomitant]
  7. TRIAVIL [Concomitant]
  8. AMITRIPTYLINE [Concomitant]
  9. UNKNOWN MEDICATION [Concomitant]
  10. PRILOSEC [Concomitant]
  11. XANAX [Concomitant]
  12. LASIX [Concomitant]
  13. FLONASE [Concomitant]
  14. ATROVENT NASAL SPRAY [Concomitant]
  15. INSULIN LANTUS [Concomitant]
  16. IPRATROPIUM [Concomitant]
  17. PHAZYME [Concomitant]
  18. VITAMINS [Concomitant]

REACTIONS (2)
  - Chest discomfort [Not Recovered/Not Resolved]
  - Product quality issue [Unknown]
